APPROVED DRUG PRODUCT: CARDIZEM SR
Active Ingredient: DILTIAZEM HYDROCHLORIDE
Strength: 60MG **Federal Register determination that product was not discontinued or withdrawn for safety or effectiveness reasons**
Dosage Form/Route: CAPSULE, EXTENDED RELEASE;ORAL
Application: N019471 | Product #001
Applicant: BIOVAIL LABORATORIES INC
Approved: Jan 23, 1989 | RLD: Yes | RS: No | Type: DISCN